FAERS Safety Report 19286588 (Version 2)
Quarter: 2021Q3

REPORT INFORMATION
  Report Type: Report from Study
  Country: CA (occurrence: CA)
  Receive Date: 20210521
  Receipt Date: 20210811
  Transmission Date: 20211014
  Serious: Yes (Other)
  Sender: FDA-Public Use
  Company Number: NVSC2019CA077021

PATIENT
  Age: 78 Year
  Sex: Female

DRUGS (4)
  1. ERELZI [Suspect]
     Active Substance: ETANERCEPT-SZZS
     Dosage: UNK
     Route: 065
     Dates: start: 20200119, end: 202001
  2. XARELTO [Concomitant]
     Active Substance: RIVAROXABAN
     Indication: PRODUCT USED FOR UNKNOWN INDICATION
     Dosage: UNK
     Route: 065
     Dates: start: 2014
  3. ERELZI [Suspect]
     Active Substance: ETANERCEPT-SZZS
     Dosage: UNK
     Route: 065
     Dates: end: 202102
  4. ERELZI [Suspect]
     Active Substance: ETANERCEPT-SZZS
     Indication: PSORIATIC ARTHROPATHY
     Dosage: 50 MG, QW
     Route: 058
     Dates: start: 20191117

REACTIONS (10)
  - Musculoskeletal stiffness [Unknown]
  - Pain [Unknown]
  - Epistaxis [Recovering/Resolving]
  - Furuncle [Recovered/Resolved]
  - Vaginal abscess [Unknown]
  - Rectal haemorrhage [Unknown]
  - Vertigo [Unknown]
  - Drug ineffective [Unknown]
  - Genital abscess [Unknown]
  - Vulval abscess [Recovered/Resolved]

NARRATIVE: CASE EVENT DATE: 20191209
